FAERS Safety Report 5606542-5 (Version None)
Quarter: 2008Q1

REPORT INFORMATION
  Report Type: 
  Country: None (occurrence: None)
  Receive Date: 20080125
  Receipt Date: 20070110
  Transmission Date: 20080703
  Serious: Yes (Life-Threatening)
  Sender: FDA-Public Use
  Company Number: 02100-USA-07-0003

PATIENT
  Age: 81 Year
  Sex: Male

DRUGS (2)
  1. PLETAL [Suspect]
     Dosage: 1 DF ORAL
     Route: 048
  2. PLETAL [Suspect]
     Dosage: 0.5 DF

REACTIONS (3)
  - LOSS OF CONSCIOUSNESS [None]
  - MALAISE [None]
  - TACHYCARDIA [None]
